FAERS Safety Report 24376482 (Version 2)
Quarter: 2024Q4

REPORT INFORMATION
  Report Type: Spontaneous
  Country: LT (occurrence: LT)
  Receive Date: 20240930
  Receipt Date: 20241004
  Transmission Date: 20250114
  Serious: Yes (Other)
  Sender: PFIZER
  Company Number: LT-PFIZER INC-202400265616

PATIENT
  Age: 4 Decade
  Sex: Male

DRUGS (2)
  1. PAXLOVID [Suspect]
     Active Substance: NIRMATRELVIR\RITONAVIR
     Indication: COVID-19 treatment
     Dosage: UNK
  2. VORTIOXETINE [Concomitant]
     Active Substance: VORTIOXETINE
     Dosage: UNK

REACTIONS (2)
  - Syncope [Recovered/Resolved]
  - Asthenia [Recovered/Resolved]
